FAERS Safety Report 7402116-4 (Version None)
Quarter: 2011Q1

REPORT INFORMATION
  Report Type: 
  Country: None (occurrence: None)
  Receive Date: 20110330
  Receipt Date: 20110315
  Transmission Date: 20110831
  Serious: Yes (Other)
  Sender: FDA-Public Use
  Company Number: FK201100516

PATIENT
  Age: 4 Year
  Sex: Male

DRUGS (4)
  1. VINCRISTINE [Concomitant]
  2. ASPARAGINASE (ASPARAGINASE) (ASPARAGINASE) [Concomitant]
  3. DEXAMETHASONE [Concomitant]
  4. DOXORUBICIN (MANUFACTURER UNKNOWN) (DOXORUBICIN HYDROCHLORIDE) (DOXORU [Suspect]
     Indication: ACUTE LYMPHOCYTIC LEUKAEMIA

REACTIONS (3)
  - POSTERIOR REVERSIBLE ENCEPHALOPATHY SYNDROME [None]
  - BLOOD PRESSURE INCREASED [None]
  - CEREBRAL INFARCTION [None]
